FAERS Safety Report 4952391-0 (Version None)
Quarter: 2006Q1

REPORT INFORMATION
  Report Type: 
  Country: None (occurrence: None)
  Receive Date: 20060317
  Receipt Date: 20060308
  Transmission Date: 20060701
  Serious: Yes (Death)
  Sender: FDA-Public Use
  Company Number: 2006JP000595

PATIENT

DRUGS (2)
  1. PROGRAF [Suspect]
     Indication: BONE MARROW TRANSPLANT
  2. METHOTREXATE [Concomitant]

REACTIONS (1)
  - ENCEPHALITIS CYTOMEGALOVIRUS [None]
